FAERS Safety Report 5043744-3 (Version None)
Quarter: 2006Q3

REPORT INFORMATION
  Report Type: 
  Country: None (occurrence: None)
  Receive Date: 20060706
  Receipt Date: 20060626
  Transmission Date: 20061208
  Serious: Yes (Hospitalization, Other)
  Sender: FDA-Public Use
  Company Number: JP-JNJFOC-20060502333

PATIENT
  Sex: Male

DRUGS (5)
  1. RISPERDAL [Suspect]
     Indication: PSYCHOTIC DISORDER
     Route: 048
  2. CARBAMAZEPINE [Suspect]
     Indication: PSYCHOTIC DISORDER
     Route: 048
  3. VALPROATE SODIUM [Suspect]
     Indication: PSYCHOTIC DISORDER
     Route: 048
  4. TRIHEXYPHENIDYL HYDROCHLORIDE [Concomitant]
     Indication: PARKINSONISM
     Route: 048
  5. MOSAPRIDE CITRATE [Concomitant]
     Indication: GASTRITIS
     Route: 048

REACTIONS (7)
  - APLASTIC ANAEMIA [None]
  - CONDITION AGGRAVATED [None]
  - CONFUSIONAL STATE [None]
  - DIZZINESS [None]
  - MALAISE [None]
  - PANCYTOPENIA [None]
  - PSYCHIATRIC SYMPTOM [None]
